FAERS Safety Report 20527687 (Version 1)
Quarter: 2022Q1

REPORT INFORMATION
  Report Type: Spontaneous
  Country: US (occurrence: None)
  Receive Date: 20220228
  Receipt Date: 20220228
  Transmission Date: 20220423
  Serious: Yes (Disabling)
  Sender: FDA-Public Use
  Company Number: None

PATIENT
  Age: 31 Year
  Sex: Female
  Weight: 56.7 kg

DRUGS (1)
  1. TRIKAFTA [Suspect]
     Active Substance: ELEXACAFTOR\IVACAFTOR\TEZACAFTOR
     Indication: Cystic fibrosis
     Dosage: OTHER QUANTITY : 3 TABLET(S);?FREQUENCY : EVERY 12 HOURS;?
     Route: 048
     Dates: start: 20191129, end: 20211207

REACTIONS (9)
  - Visual impairment [None]
  - Migraine [None]
  - Fluid retention [None]
  - Arthralgia [None]
  - Dizziness [None]
  - Mood swings [None]
  - Dry eye [None]
  - Memory impairment [None]
  - Dacryostenosis acquired [None]

NARRATIVE: CASE EVENT DATE: 20200818
